FAERS Safety Report 15578634 (Version 2)
Quarter: 2019Q1

REPORT INFORMATION
  Report Type: Spontaneous
  Country: US (occurrence: US)
  Receive Date: 20181102
  Receipt Date: 20190129
  Transmission Date: 20190417
  Serious: No
  Sender: FDA-Public Use
  Company Number: US-ALLERGAN-1849742US

PATIENT
  Age: 69 Year
  Sex: Female
  Weight: 65.76 kg

DRUGS (3)
  1. RHOFADE [Suspect]
     Active Substance: OXYMETAZOLINE HYDROCHLORIDE
     Indication: ROSACEA
     Dosage: PEA SIZE AMOUNT TO CHEEKS IN A THIN LAYER
     Route: 061
     Dates: start: 2017, end: 20181013
  2. CALCIUM [Concomitant]
     Active Substance: CALCIUM
  3. MULTI VITAMIN [Concomitant]
     Active Substance: VITAMINS

REACTIONS (6)
  - Application site dryness [Recovered/Resolved]
  - Lip dry [Recovered/Resolved]
  - Lip swelling [Recovered/Resolved]
  - Lip erythema [Recovered/Resolved]
  - Application site swelling [Recovered/Resolved]
  - Application site erythema [Recovered/Resolved]
